FAERS Safety Report 5521690-6 (Version None)
Quarter: 2007Q4

REPORT INFORMATION
  Report Type: 
  Country: None (occurrence: None)
  Receive Date: 20071120
  Receipt Date: 20071109
  Transmission Date: 20080405
  Serious: Yes (Hospitalization, Other)
  Sender: FDA-Public Use
  Company Number: PHHO2007DE15778

PATIENT
  Age: 61 Year
  Sex: Female
  Weight: 55 kg

DRUGS (2)
  1. RAD001 VS PLACEBO [Suspect]
     Indication: CARCINOID TUMOUR
     Dosage: NO TREATMENT
     Route: 048
  2. SANDOSTATIN LAR [Suspect]
     Indication: CARCINOID TUMOUR
     Dosage: 30 MG
     Route: 030
     Dates: start: 20070806

REACTIONS (5)
  - ABDOMINAL PAIN [None]
  - INTESTINAL CONGESTION [None]
  - NAUSEA [None]
  - SUBILEUS [None]
  - VOMITING [None]
